FAERS Safety Report 12700575 (Version 3)
Quarter: 2016Q3

REPORT INFORMATION
  Report Type: Spontaneous
  Country: US (occurrence: US)
  Receive Date: 20160830
  Receipt Date: 20160921
  Transmission Date: 20161109
  Serious: Yes (Death, Hospitalization, Other)
  Sender: FDA-Public Use
  Company Number: US-BAUSCH-BL-2016-020602

PATIENT
  Age: 72 Year
  Sex: Male

DRUGS (2)
  1. LACTULOSE. [Concomitant]
     Active Substance: LACTULOSE
     Indication: ENCEPHALOPATHY
  2. XIFAXAN [Suspect]
     Active Substance: RIFAXIMIN
     Indication: HEPATIC ENCEPHALOPATHY
     Route: 048
     Dates: start: 20160809, end: 20160816

REACTIONS (3)
  - Renal failure [Unknown]
  - Thrombosis [Unknown]
  - Hepatorenal syndrome [Fatal]

NARRATIVE: CASE EVENT DATE: 20160818
